FAERS Safety Report 12957594 (Version 1)
Quarter: 2016Q4

REPORT INFORMATION
  Report Type: Spontaneous
  Country: US (occurrence: US)
  Receive Date: 20161118
  Receipt Date: 20161118
  Transmission Date: 20170207
  Serious: No
  Sender: FDA-Public Use
  Company Number: US-MEDA-2016110014

PATIENT
  Age: 66 Year
  Sex: Female

DRUGS (2)
  1. SOMA [Suspect]
     Active Substance: CARISOPRODOL
     Indication: NECK PAIN
     Route: 048
     Dates: start: 201410
  2. SOMA [Suspect]
     Active Substance: CARISOPRODOL
     Indication: MUSCULOSKELETAL PAIN
     Route: 048
     Dates: start: 201410

REACTIONS (1)
  - Feeling abnormal [Unknown]

NARRATIVE: CASE EVENT DATE: 201410
